FAERS Safety Report 7206062-0 (Version None)
Quarter: 2010Q4

REPORT INFORMATION
  Report Type: 
  Country: None (occurrence: None)
  Receive Date: 20101229
  Receipt Date: 20101229
  Transmission Date: 20110411
  Serious: Yes (Life-Threatening, Hospitalization, Other)
  Sender: FDA-Public Use
  Company Number: None

PATIENT
  Age: 11 Month
  Sex: Female
  Weight: 9.0719 kg

DRUGS (2)
  1. HYLANDS TEETHING TABLETS [Suspect]
     Indication: RESTLESSNESS
     Dosage: 2 - 3 TABLETS PO
     Route: 048
     Dates: start: 20090901, end: 20100401
  2. HYLANDS TEETHING TABLETS [Suspect]
     Indication: TEETHING
     Dosage: 2 - 3 TABLETS PO
     Route: 048
     Dates: start: 20090901, end: 20100401

REACTIONS (6)
  - FEBRILE CONVULSION [None]
  - HYPERHIDROSIS [None]
  - HYPOTONIA [None]
  - LETHARGY [None]
  - UNRESPONSIVE TO STIMULI [None]
  - WHEEZING [None]
